FAERS Safety Report 7412353-0 (Version None)
Quarter: 2011Q2

REPORT INFORMATION
  Report Type: 
  Country: None (occurrence: None)
  Receive Date: 20110413
  Receipt Date: 20110404
  Transmission Date: 20111010
  Serious: Yes (Other)
  Sender: FDA-Public Use
  Company Number: US-ASTRAZENECA-2011SE18917

PATIENT
  Age: 72 Year
  Sex: Female
  Weight: 77.1 kg

DRUGS (8)
  1. NITROFURANTOIN [Interacting]
     Indication: CYSTITIS
  2. NEXIUM [Suspect]
     Indication: GASTRIC DISORDER
     Route: 048
  3. CELEBREX [Interacting]
     Indication: ARTHRITIS
     Route: 048
  4. FENTANYL [Interacting]
     Indication: BACK PAIN
     Route: 062
  5. PRISTIQ [Interacting]
     Indication: DEPRESSION
     Route: 048
     Dates: start: 20110301
  6. LISINOPRIL [Interacting]
     Indication: HYPERTENSION
     Route: 048
  7. LACTULOSE [Interacting]
     Indication: CONSTIPATION
  8. SPIRIVA [Interacting]
     Indication: CHRONIC OBSTRUCTIVE PULMONARY DISEASE
     Route: 055

REACTIONS (2)
  - RASH GENERALISED [None]
  - DRUG INTERACTION [None]
